FAERS Safety Report 25811104 (Version 1)
Quarter: 2025Q3

REPORT INFORMATION
  Report Type: Report from Study
  Country: US (occurrence: US)
  Receive Date: 20250917
  Receipt Date: 20250917
  Transmission Date: 20251021
  Serious: No
  Sender: SUNOVION
  Company Number: US-SUMITOMO PHARMA SWITZERLAND GMBH-2025SPA011525

PATIENT
  Age: 60 Year
  Sex: Male

DRUGS (9)
  1. ORGOVYX [Suspect]
     Active Substance: RELUGOLIX
     Indication: Prostate cancer
     Route: 048
  2. ORGOVYX [Suspect]
     Active Substance: RELUGOLIX
     Route: 048
  3. ATENOLOL [Concomitant]
     Active Substance: ATENOLOL
  4. BUPROPION [Concomitant]
     Active Substance: BUPROPION
  5. GEMFIBROZIL [Concomitant]
     Active Substance: GEMFIBROZIL
  6. HYDROCHLOROTHIAZIDE [Concomitant]
     Active Substance: HYDROCHLOROTHIAZIDE
  7. LISINOPRIL [Concomitant]
     Active Substance: LISINOPRIL
  8. LOVASTATIN [Concomitant]
     Active Substance: LOVASTATIN
  9. PRAMIPEXOLE [Concomitant]
     Active Substance: PRAMIPEXOLE

REACTIONS (2)
  - Alopecia [Unknown]
  - Fatigue [Unknown]
